FAERS Safety Report 15349968 (Version 1)
Quarter: 2018Q3

REPORT INFORMATION
  Report Type: Spontaneous
  Country: SE (occurrence: SE)
  Receive Date: 20180904
  Receipt Date: 20180904
  Transmission Date: 20181010
  Serious: Yes (Other)
  Sender: FDA-Public Use
  Company Number: PHHY2018SE089739

PATIENT
  Age: 31 Year
  Sex: Male
  Weight: 76 kg

DRUGS (1)
  1. TEGRETOL [Suspect]
     Active Substance: CARBAMAZEPINE
     Indication: EPILEPSY
     Dosage: 800 MG, QD (1 DAY)
     Route: 065
     Dates: start: 20101001

REACTIONS (2)
  - Sperm concentration decreased [Unknown]
  - Infertility [Unknown]

NARRATIVE: CASE EVENT DATE: 201807
